FAERS Safety Report 4350936-5 (Version None)
Quarter: 2004Q2

REPORT INFORMATION
  Report Type: 
  Country: None (occurrence: None)
  Receive Date: 20040430
  Receipt Date: 20040330
  Transmission Date: 20050107
  Serious: Yes (Hospitalization)
  Sender: FDA-Public Use
  Company Number: GB-GLAXOSMITHKLINE-B0328736A

PATIENT
  Age: 93 Year
  Sex: Female

DRUGS (3)
  1. DIGOXIN [Suspect]
     Dosage: 125MCG PER DAY
     Route: 048
  2. CLOPIDOGREL [Concomitant]
     Dosage: 35MG PER DAY
     Route: 048
  3. FOLIC ACID [Concomitant]
     Dosage: 5MG PER DAY
     Route: 048

REACTIONS (7)
  - CONFUSIONAL STATE [None]
  - DEHYDRATION [None]
  - DUODENAL ULCER [None]
  - FALL [None]
  - HEPATOTOXICITY [None]
  - RENAL FAILURE ACUTE [None]
  - THERAPEUTIC AGENT TOXICITY [None]
